FAERS Safety Report 4500733-2 (Version None)
Quarter: 2004Q4

REPORT INFORMATION
  Report Type: 
  Country: None (occurrence: None)
  Receive Date: 20041112
  Receipt Date: 20041112
  Transmission Date: 20050328
  Serious: Yes (Death)
  Sender: FDA-Public Use
  Company Number: None

PATIENT
  Sex: Male
  Weight: 51.2 kg

DRUGS (3)
  1. DOCETAXEL [Suspect]
     Dates: start: 20040802
  2. CISPLATIN [Suspect]
     Dates: start: 20040802
  3. FLUOROURACIL [Suspect]
     Dates: start: 20040802

REACTIONS (5)
  - CARDIAC ARREST [None]
  - HYPOTENSION [None]
  - RENAL FAILURE [None]
  - SEPSIS [None]
  - WHITE BLOOD CELL COUNT DECREASED [None]
